FAERS Safety Report 17794251 (Version 1)
Quarter: 2020Q2

REPORT INFORMATION
  Report Type: Spontaneous
  Country: PT (occurrence: PT)
  Receive Date: 20200515
  Receipt Date: 20200515
  Transmission Date: 20200714
  Serious: Yes (Other)
  Sender: FDA-Public Use
  Company Number: PT-MYLANLABS-2020M1047902

PATIENT
  Age: 54 Year
  Sex: Female
  Weight: 80 kg

DRUGS (4)
  1. EUTIROX [Concomitant]
     Active Substance: LEVOTHYROXINE SODIUM
     Dosage: UNK
     Route: 048
  2. IDEOS [Concomitant]
     Active Substance: CALCIUM CARBONATE\CHOLECALCIFEROL
     Dosage: UNK
     Route: 048
  3. BILAXTEN [Concomitant]
     Active Substance: BILASTINE
     Dosage: 40 MILLIGRAM, QD
     Route: 048
  4. DERMESTRIL 50 [Suspect]
     Active Substance: ESTRADIOL
     Indication: MENOPAUSAL SYMPTOMS
     Dosage: 1 DOSAGE FORM, Q3D
     Route: 062
     Dates: start: 20200312, end: 20200409

REACTIONS (7)
  - Vomiting [Recovered/Resolved]
  - Breast oedema [Recovered/Resolved]
  - Dizziness [Recovered/Resolved]
  - Breast pain [Recovered/Resolved]
  - Migraine [Recovered/Resolved]
  - Libido increased [Recovered/Resolved]
  - Nausea [Recovered/Resolved]

NARRATIVE: CASE EVENT DATE: 20200409
